FAERS Safety Report 4353702-X (Version None)
Quarter: 2004Q2

REPORT INFORMATION
  Report Type: 
  Country: None (occurrence: None)
  Receive Date: 20040430
  Receipt Date: 20040415
  Transmission Date: 20050107
  Serious: Yes (Hospitalization)
  Sender: FDA-Public Use
  Company Number: S04-USA-00532-01

PATIENT
  Age: 13 Year
  Sex: Female

DRUGS (4)
  1. LEXAPRO [Suspect]
     Indication: DEPRESSION
     Dosage: 20 MG QHS PO
     Route: 048
     Dates: end: 20040102
  2. SEROQUEL [Concomitant]
  3. RISPERDAL [Concomitant]
  4. ABILIFY [Concomitant]

REACTIONS (11)
  - ACNE [None]
  - BLOOD GLUCOSE INCREASED [None]
  - CONDITION AGGRAVATED [None]
  - EYELID OEDEMA [None]
  - HEADACHE [None]
  - HIGH DENSITY LIPOPROTEIN DECREASED [None]
  - HYPERTRIGLYCERIDAEMIA [None]
  - OLIGURIA [None]
  - RENAL IMPAIRMENT [None]
  - URINARY TRACT DISORDER [None]
  - WEIGHT INCREASED [None]
